FAERS Safety Report 19965357 (Version 2)
Quarter: 2021Q4

REPORT INFORMATION
  Report Type: Report from Study
  Country: BR (occurrence: BR)
  Receive Date: 20211018
  Receipt Date: 20211028
  Transmission Date: 20220303
  Serious: Yes (Life-Threatening, Hospitalization, Other)
  Sender: FDA-Public Use
  Company Number: NVSC2021BR131781

PATIENT
  Sex: Female

DRUGS (2)
  1. COSENTYX [Suspect]
     Active Substance: SECUKINUMAB
     Indication: Psoriasis
     Dosage: 300 MG
     Route: 065
     Dates: start: 201807
  2. COSENTYX [Suspect]
     Active Substance: SECUKINUMAB
     Dosage: UNK, (IN BEGINNING OF 2021)
     Route: 065

REACTIONS (20)
  - Asthma [Unknown]
  - Apnoea [Unknown]
  - Fall [Unknown]
  - Open fracture [Unknown]
  - Cataract [Unknown]
  - Wrist fracture [Unknown]
  - Blindness [Not Recovered/Not Resolved]
  - Nervousness [Unknown]
  - Contusion [Unknown]
  - Pain of skin [Unknown]
  - Blister [Not Recovered/Not Resolved]
  - Skin haemorrhage [Unknown]
  - Psoriasis [Not Recovered/Not Resolved]
  - Wound [Unknown]
  - Scab [Not Recovered/Not Resolved]
  - Fatigue [Unknown]
  - Pruritus [Unknown]
  - Scratch [Unknown]
  - Erythema [Unknown]
  - Dandruff [Unknown]
